FAERS Safety Report 20998669 (Version 7)
Quarter: 2023Q1

REPORT INFORMATION
  Report Type: Report from Study
  Country: DE (occurrence: DE)
  Receive Date: 20220623
  Receipt Date: 20230216
  Transmission Date: 20230417
  Serious: Yes (Hospitalization, Other)
  Sender: FDA-Public Use
  Company Number: DE-PFM-2022-05095

PATIENT
  Age: 54 Year
  Sex: Male
  Weight: 83 kg

DRUGS (14)
  1. ENCORAFENIB [Suspect]
     Active Substance: ENCORAFENIB
     Indication: Malignant melanoma
     Dosage: 450 MG, QD (1/DAY)
     Route: 048
     Dates: start: 20201023, end: 20201205
  2. ENCORAFENIB [Suspect]
     Active Substance: ENCORAFENIB
     Dosage: 150 MG, QD (1/DAY)
     Route: 048
     Dates: start: 20210111
  3. ENCORAFENIB [Suspect]
     Active Substance: ENCORAFENIB
     Dosage: 225 MG, QD (1/DAY)
     Route: 048
     Dates: start: 20210125, end: 20210307
  4. ENCORAFENIB [Suspect]
     Active Substance: ENCORAFENIB
     Dosage: 300 MG, QD (1/DAY)
     Route: 048
     Dates: start: 20210329, end: 20210525
  5. ENCORAFENIB [Suspect]
     Active Substance: ENCORAFENIB
     Dosage: 150 MG, QD (1/DAY)
     Route: 048
     Dates: start: 20210706, end: 20211004
  6. ENCORAFENIB [Suspect]
     Active Substance: ENCORAFENIB
     Dosage: 225 MG, QD (1/DAY)
     Route: 048
     Dates: start: 20211006
  7. BINIMETINIB [Suspect]
     Active Substance: BINIMETINIB
     Indication: Metastatic malignant melanoma
     Dosage: 45 MG, BID (2/DAY)
     Route: 048
     Dates: start: 20201023, end: 20201205
  8. BINIMETINIB [Suspect]
     Active Substance: BINIMETINIB
     Dosage: 30 MG, QD (1/DAY)
     Route: 048
     Dates: start: 20210111, end: 20210307
  9. BINIMETINIB [Suspect]
     Active Substance: BINIMETINIB
     Dosage: 45 MG, QD (1/DAY)
     Route: 048
     Dates: start: 20210308, end: 20210525
  10. BINIMETINIB [Suspect]
     Active Substance: BINIMETINIB
     Dosage: 30 MG, QD (1/DAY)
     Route: 048
     Dates: start: 20210706, end: 20211004
  11. BINIMETINIB [Suspect]
     Active Substance: BINIMETINIB
     Dosage: 45 MG, QD (1/DAY)
     Route: 048
     Dates: start: 20211006
  12. ATORVASTATIN CALCIUM [Concomitant]
     Active Substance: ATORVASTATIN CALCIUM
     Indication: Hypercholesterolaemia
     Dosage: UNK
     Route: 065
  13. ERGOCALCIFEROL [Concomitant]
     Active Substance: ERGOCALCIFEROL
     Indication: Prophylaxis
     Dosage: UNK
     Route: 065
     Dates: start: 20220214
  14. MAGNESIUM CARBONATE [Concomitant]
     Active Substance: MAGNESIUM CARBONATE
     Indication: Prophylaxis
     Dosage: UNK
     Route: 065

REACTIONS (11)
  - Drug-induced liver injury [Recovered/Resolved]
  - Arthroscopy [Recovered/Resolved]
  - Hip surgery [Recovered/Resolved]
  - Immune-mediated pancreatitis [Recovered/Resolved]
  - Lipase increased [Recovered/Resolved]
  - Gastroenteritis [Recovered/Resolved]
  - Myalgia [Recovered/Resolved]
  - Myalgia [Recovered/Resolved]
  - Lipase increased [Recovered/Resolved]
  - Off label use [Unknown]
  - Product use issue [Unknown]

NARRATIVE: CASE EVENT DATE: 20201204
